FAERS Safety Report 20093946 (Version 2)
Quarter: 2021Q4

REPORT INFORMATION
  Report Type: Spontaneous
  Country: JP (occurrence: JP)
  Receive Date: 20211121
  Receipt Date: 20211221
  Transmission Date: 20220303
  Serious: Yes (Other)
  Sender: FDA-Public Use
  Company Number: JP-SAKK-2021SA382200AA

PATIENT
  Age: 71 Year
  Sex: Female
  Weight: 60 kg

DRUGS (4)
  1. SARCLISA [Suspect]
     Active Substance: ISATUXIMAB-IRFC
     Indication: Plasma cell myeloma
     Dosage: DAILY DOSE: 600
     Route: 041
     Dates: start: 20201118, end: 202110
  2. DEXAMETHASONE SODIUM PHOSPHATE [Suspect]
     Active Substance: DEXAMETHASONE SODIUM PHOSPHATE
     Indication: Plasma cell myeloma
     Dosage: DAILY DOSE: 40 MG
     Route: 065
     Dates: start: 20201118, end: 202110
  3. POMALIDOMIDE [Suspect]
     Active Substance: POMALIDOMIDE
     Indication: Plasma cell myeloma
     Dosage: UNK
     Route: 065
     Dates: start: 20201118
  4. POMALIDOMIDE [Suspect]
     Active Substance: POMALIDOMIDE
     Dosage: DAILY DOSE: INCREASED TO 4 MG
     Route: 065
     Dates: start: 202108, end: 202110

REACTIONS (2)
  - Hepatitis B reactivation [Recovered/Resolved]
  - Disease progression [Recovering/Resolving]

NARRATIVE: CASE EVENT DATE: 20210801
